FAERS Safety Report 7079896-3 (Version None)
Quarter: 2010Q4

REPORT INFORMATION
  Report Type: 
  Country: None (occurrence: None)
  Receive Date: 20101102
  Receipt Date: 20101021
  Transmission Date: 20110411
  Serious: Yes (Hospitalization)
  Sender: FDA-Public Use
  Company Number: IT-PFIZER INC-2010016700

PATIENT
  Age: 30 Year
  Sex: Female

DRUGS (4)
  1. ARACYTIN [Suspect]
     Indication: ACUTE MONOCYTIC LEUKAEMIA
     Dosage: 300 MG TOTAL
     Route: 042
     Dates: start: 20090709, end: 20090712
  2. ARACYTIN [Suspect]
     Dosage: 282 MG DAILY
     Route: 042
     Dates: start: 20090712, end: 20090715
  3. ZAVEDOS [Suspect]
     Indication: ACUTE MONOCYTIC LEUKAEMIA
     Dosage: 17 MG, DAILY
     Route: 042
     Dates: start: 20090712, end: 20090714
  4. ETOPOSIDE [Suspect]
     Indication: ACUTE MONOCYTIC LEUKAEMIA
     Dosage: 141 MG, DAILY
     Route: 042
     Dates: start: 20090712, end: 20090716

REACTIONS (4)
  - OEDEMA [None]
  - STOMATITIS [None]
  - STOMATITIS NECROTISING [None]
  - VOMITING [None]
